FAERS Safety Report 9610989 (Version 1)
Quarter: 2013Q4

REPORT INFORMATION
  Report Type: Spontaneous
  Country: US (occurrence: US)
  Receive Date: 20131009
  Receipt Date: 20131009
  Transmission Date: 20140711
  Serious: Yes (Other)
  Sender: FDA-Public Use
  Company Number: US-GLAXOSMITHKLINE-A1043916A

PATIENT
  Age: 73 Year
  Sex: Female

DRUGS (10)
  1. REQUIP XL [Suspect]
     Indication: RESTLESS LEGS SYNDROME
     Dosage: 4MG PER DAY
     Route: 048
     Dates: start: 20130927, end: 20130929
  2. REQUIP [Suspect]
     Indication: RESTLESS LEGS SYNDROME
     Dosage: 1MG TWICE PER DAY
     Route: 065
     Dates: start: 2013, end: 20130927
  3. OESTRADIOL + OESTRIOL [Concomitant]
  4. PROZAC [Concomitant]
  5. LORAZEPAM [Concomitant]
  6. PROPAFENONE [Concomitant]
  7. PRIMIDONE [Concomitant]
  8. DILTIAZEM [Concomitant]
  9. PRADAXA [Concomitant]
  10. ASMANEX [Concomitant]

REACTIONS (3)
  - Oxygen supplementation [Recovering/Resolving]
  - Dyspnoea [Recovering/Resolving]
  - Drug dispensing error [Unknown]
